FAERS Safety Report 9589895 (Version 1)
Quarter: 2013Q4

REPORT INFORMATION
  Report Type: Spontaneous
  Country: US (occurrence: US)
  Receive Date: 20131003
  Receipt Date: 20131003
  Transmission Date: 20140711
  Serious: No
  Sender: FDA-Public Use
  Company Number: US-AMGEN-USASP2012073340

PATIENT
  Age: 66 Year
  Sex: Female

DRUGS (2)
  1. ENBREL [Suspect]
     Indication: PSORIATIC ARTHROPATHY
     Dosage: 50 MG, BIWEEKLY
     Dates: start: 20121005
  2. METHOTREXATE [Concomitant]
     Dosage: 2.5 MG, QWK

REACTIONS (1)
  - Nasopharyngitis [Not Recovered/Not Resolved]
